FAERS Safety Report 9246798 (Version 1)
Quarter: 2013Q2

REPORT INFORMATION
  Report Type: Spontaneous
  Country: US (occurrence: US)
  Receive Date: 20130422
  Receipt Date: 20130422
  Transmission Date: 20140414
  Serious: No
  Sender: FDA-Public Use
  Company Number: US-009507513-1304USA007235

PATIENT
  Sex: Female

DRUGS (1)
  1. IMPLANON [Suspect]
     Indication: CONTRACEPTION
     Dosage: 68 MG, UNK
     Route: 059

REACTIONS (4)
  - Implant site fibrosis [Unknown]
  - Complication of device removal [Unknown]
  - Local anaesthesia [Unknown]
  - Device difficult to use [Unknown]
